FAERS Safety Report 18445552 (Version 1)
Quarter: 2020Q4

REPORT INFORMATION
  Report Type: Spontaneous
  Country: CN (occurrence: CN)
  Receive Date: 20201030
  Receipt Date: 20201030
  Transmission Date: 20210114
  Serious: Yes (Other)
  Sender: FDA-Public Use
  Company Number: CN-BAYER-2020-234783

PATIENT
  Age: 43 Year
  Sex: Male
  Weight: 72 kg

DRUGS (2)
  1. IOPROMIDE. [Suspect]
     Active Substance: IOPROMIDE
     Indication: CHRONIC HEPATITIS B
     Dosage: 88 ML, ONCE
     Route: 042
     Dates: start: 20201023, end: 20201023
  2. IOPROMIDE. [Suspect]
     Active Substance: IOPROMIDE
     Indication: COMPUTERISED TOMOGRAM

REACTIONS (6)
  - Erythema [Recovering/Resolving]
  - Conjunctival hyperaemia [Recovering/Resolving]
  - Rash erythematous [Recovering/Resolving]
  - Flushing [Recovering/Resolving]
  - Scleral hyperaemia [Recovering/Resolving]
  - Peripheral swelling [Recovering/Resolving]

NARRATIVE: CASE EVENT DATE: 20201023
